FAERS Safety Report 24732326 (Version 1)
Quarter: 2024Q4

REPORT INFORMATION
  Report Type: Spontaneous
  Country: CN (occurrence: CN)
  Receive Date: 20241213
  Receipt Date: 20241213
  Transmission Date: 20250114
  Serious: Yes (Hospitalization)
  Sender: Kenvue
  Company Number: CN-KENVUE-20241202596

PATIENT

DRUGS (3)
  1. CHILDRENS MOTRIN [Suspect]
     Active Substance: IBUPROFEN
     Indication: Antipyresis
     Dosage: 5 MILLILITER, THRICE A DAY
     Route: 048
     Dates: start: 20241123, end: 20241124
  2. HERBALS [Suspect]
     Active Substance: HERBALS
     Indication: Pyrexia
     Dosage: 1 BOTTLE, AT NIGHT
     Route: 048
     Dates: start: 20241123, end: 20241123
  3. AMBROXOL HYDROCHLORIDE [Suspect]
     Active Substance: AMBROXOL HYDROCHLORIDE
     Indication: Cough
     Dosage: 2.5 MILLILITER, TWICE A DAY
     Route: 048
     Dates: start: 20241124, end: 20241124

REACTIONS (3)
  - Inappropriate schedule of product administration [Unknown]
  - Vomiting [Unknown]
  - Drug hypersensitivity [Recovering/Resolving]

NARRATIVE: CASE EVENT DATE: 20241123
